FAERS Safety Report 9314176 (Version 1)
Quarter: 2013Q2

REPORT INFORMATION
  Report Type: Spontaneous
  Country: US (occurrence: None)
  Receive Date: 20130524
  Receipt Date: 20130524
  Transmission Date: 20140414
  Serious: Yes (Disabling)
  Sender: FDA-Public Use
  Company Number: None

PATIENT
  Age: 68 Year
  Sex: 0
  Weight: 61.24 kg

DRUGS (1)
  1. PRAVASTATIN [Suspect]
     Indication: BLOOD CHOLESTEROL
     Dosage: 1 TAB
     Dates: start: 20090313, end: 20110514

REACTIONS (3)
  - Swelling face [None]
  - Lip swelling [None]
  - Muscle disorder [None]
